FAERS Safety Report 9630010 (Version 1)
Quarter: 2013Q4

REPORT INFORMATION
  Report Type: Spontaneous
  Country: SE (occurrence: SE)
  Receive Date: 20131017
  Receipt Date: 20131017
  Transmission Date: 20140711
  Serious: Yes (Other)
  Sender: FDA-Public Use
  Company Number: ALCN2013SE005158

PATIENT
  Age: 66 Year
  Sex: Male

DRUGS (1)
  1. NEVANAC [Suspect]
     Indication: POSTOPERATIVE CARE
     Dosage: 1 GTT, TID
     Route: 047
     Dates: start: 201302, end: 20130410

REACTIONS (1)
  - Eye haemorrhage [Recovered/Resolved]
